FAERS Safety Report 25226367 (Version 1)
Quarter: 2025Q2

REPORT INFORMATION
  Report Type: Spontaneous
  Country: US (occurrence: US)
  Receive Date: 20250422
  Receipt Date: 20250422
  Transmission Date: 20250716
  Serious: Yes (Other)
  Sender: STASON PHARMACEUTICALS, INC.
  Company Number: US-Stason Pharmaceuticals, Inc.-2175378

PATIENT
  Age: 88 Year
  Sex: Male

DRUGS (3)
  1. PURINETHOL [Suspect]
     Active Substance: MERCAPTOPURINE
     Indication: Acute lymphocytic leukaemia
  2. PREDNISONE [Suspect]
     Active Substance: PREDNISONE
  3. AZACITIDINE [Suspect]
     Active Substance: AZACITIDINE

REACTIONS (2)
  - Cardiac iron overload [Recovering/Resolving]
  - Cardiomyopathy [Recovering/Resolving]
